FAERS Safety Report 6017558-1 (Version None)
Quarter: 2008Q4

REPORT INFORMATION
  Report Type: 
  Country: None (occurrence: None)
  Receive Date: 20081223
  Receipt Date: 20081215
  Transmission Date: 20090506
  Serious: Yes (Other)
  Sender: FDA-Public Use
  Company Number: US-AMGEN-KDL323525

PATIENT
  Sex: Female

DRUGS (12)
  1. NEULASTA [Suspect]
     Indication: CHEMOTHERAPY
     Route: 065
     Dates: start: 20081102
  2. PLAVIX [Concomitant]
  3. PROCRIT [Concomitant]
     Indication: ANAEMIA OF MALIGNANT DISEASE
  4. VERAPAMIL [Concomitant]
  5. IMDUR [Concomitant]
  6. SYNTHROID [Concomitant]
  7. ASPIRIN [Concomitant]
  8. VALIUM [Concomitant]
  9. NEXIUM [Concomitant]
  10. ZOLOFT [Concomitant]
  11. GEMZAR [Concomitant]
  12. CARBOPLATIN [Concomitant]

REACTIONS (9)
  - BACK PAIN [None]
  - COUGH [None]
  - DYSPNOEA [None]
  - ERUCTATION [None]
  - FLATULENCE [None]
  - PAIN [None]
  - PAIN IN EXTREMITY [None]
  - PHARYNGEAL OEDEMA [None]
  - THROAT IRRITATION [None]
